FAERS Safety Report 9209223 (Version 1)
Quarter: 2013Q2

REPORT INFORMATION
  Report Type: Spontaneous
  Country: US (occurrence: US)
  Receive Date: 20130404
  Receipt Date: 20130404
  Transmission Date: 20140414
  Serious: No
  Sender: FDA-Public Use
  Company Number: US-BAYER-2013-035296

PATIENT
  Age: 22 Year
  Sex: Female

DRUGS (2)
  1. NATAZIA [Suspect]
     Indication: POLYCYSTIC OVARIES
     Dosage: UNK
     Route: 048
  2. CYTOMEL [Concomitant]
     Indication: THYROID DISORDER

REACTIONS (2)
  - Feeling abnormal [None]
  - Off label use [None]
